FAERS Safety Report 7249270-5 (Version None)
Quarter: 2011Q1

REPORT INFORMATION
  Report Type: 
  Country: None (occurrence: None)
  Receive Date: 20110128
  Receipt Date: 20101123
  Transmission Date: 20110831
  Serious: Yes (Hospitalization, Other)
  Sender: FDA-Public Use
  Company Number: US-BAYER-201022419NA

PATIENT
  Sex: Female
  Weight: 113.38 kg

DRUGS (27)
  1. NORVASC [Concomitant]
     Indication: HYPERTENSION
     Dosage: 5 MG, QD
     Dates: start: 20020221, end: 20050928
  2. LEUPROLIDE ACETATE [Concomitant]
     Dosage: UNK
     Dates: start: 20020104
  3. GLUCOPHAGE [Concomitant]
     Indication: POLYCYSTIC OVARIES
  4. PROGESTERON [Concomitant]
  5. PRENATAL VITAMINS [Concomitant]
  6. LEVOXYL [Concomitant]
     Indication: HYPOTHYROIDISM
     Dosage: UNK
     Dates: start: 20030101, end: 20080101
  7. LEUPROLIDE ACETATE [Concomitant]
     Dosage: UNK
     Dates: start: 20040502
  8. REGLAN [Concomitant]
     Dosage: 5 MG, TID
  9. LORAZEPAM [Concomitant]
     Indication: ANXIETY
  10. ESTRADIOL [Suspect]
     Dosage: 2 MG, UNK
  11. YASMIN [Suspect]
     Indication: ORAL CONTRACEPTION
     Dosage: UNK UNK, UNK
     Route: 048
     Dates: start: 20030201, end: 20050915
  12. HYDROCHLOROTHIAZIDE [Concomitant]
     Dosage: 12.5 MCG/24HR, UNK
     Route: 048
  13. ASPIRIN [Concomitant]
  14. ALDOMET [Concomitant]
  15. HYDROCHLOROTHIAZIDE [Concomitant]
     Indication: DIURETIC THERAPY
     Dosage: 25 MG, UNK
     Route: 048
     Dates: start: 20030505, end: 20051104
  16. METFORMIN [Concomitant]
     Indication: POLYCYSTIC OVARIES
     Dosage: 500 MG, QD
     Route: 048
     Dates: start: 20030219, end: 20080602
  17. LEVOTHYROXINE SODIUM [Concomitant]
     Dosage: 125 MCG/24HR, UNK
     Route: 048
     Dates: start: 20030505
  18. METOCLOPRAMIDE HCL [Suspect]
     Indication: NAUSEA
  19. LOVENOX [Concomitant]
     Indication: ANTICOAGULANT THERAPY
     Dosage: 100 MG/ML, UNK
     Route: 058
     Dates: start: 20030101, end: 20070101
  20. CLARINEX [Concomitant]
     Indication: MULTIPLE ALLERGIES
     Dosage: 5 MG, QD
     Dates: start: 20050830
  21. HEPARIN [Concomitant]
  22. ZITHROMAX [Concomitant]
     Dosage: 250 MG, UNK
     Route: 048
     Dates: start: 20040101, end: 20060101
  23. COUMADIN [Concomitant]
     Dosage: UNK
  24. ZOLOFT [Concomitant]
  25. HYDROCHLOROTHIAZIDE [Concomitant]
  26. NAPROXEN [Concomitant]
     Indication: ANTIINFLAMMATORY THERAPY
     Dosage: 500 MG, UNK
     Route: 048
     Dates: start: 20050412
  27. THYROXIN [Concomitant]

REACTIONS (9)
  - DYSPNOEA [None]
  - GALLBLADDER DISORDER [None]
  - PULMONARY EMBOLISM [None]
  - MUSCULOSKELETAL PAIN [None]
  - DEEP VEIN THROMBOSIS [None]
  - CHEST PAIN [None]
  - SINUS TACHYCARDIA [None]
  - ANXIETY [None]
  - DYSPNOEA EXERTIONAL [None]
